FAERS Safety Report 8155965-1 (Version None)
Quarter: 2012Q1

REPORT INFORMATION
  Report Type: 
  Country: None (occurrence: None)
  Receive Date: 20120103
  Receipt Date: 20111018
  Transmission Date: 20120608
  Serious: No
  Sender: FDA-Public Use
  Company Number: AE-2011-000900

PATIENT
  Age: 51 Year
  Sex: Female
  Weight: 77.1115 kg

DRUGS (3)
  1. RIBAVIRIN [Concomitant]
  2. PEGASYS [Concomitant]
  3. INCIVEK [Suspect]
     Dosage: 2250 MG (750 MG, 1 IN 8 HR)
     Dates: start: 20110808

REACTIONS (6)
  - PYREXIA [None]
  - RASH GENERALISED [None]
  - BLISTER [None]
  - EYE IRRITATION [None]
  - BURNING SENSATION [None]
  - OEDEMA PERIPHERAL [None]
